FAERS Safety Report 22332912 (Version 9)
Quarter: 2024Q1

REPORT INFORMATION
  Report Type: Spontaneous
  Country: US (occurrence: US)
  Receive Date: 20230517
  Receipt Date: 20240213
  Transmission Date: 20240410
  Serious: Yes (Death, Hospitalization)
  Sender: FDA-Public Use
  Company Number: US-PFIZER INC-PV202300084090

PATIENT
  Age: 75 Year
  Sex: Female
  Weight: 135.01 kg

DRUGS (4)
  1. IBRANCE [Suspect]
     Active Substance: PALBOCICLIB
     Indication: Breast cancer metastatic
     Dosage: 100 MG, CYCLIC DAILY ON DAYS 1-21 OF A 28 DAY CYCLE
     Route: 048
     Dates: start: 2022
  2. IBRANCE [Suspect]
     Active Substance: PALBOCICLIB
     Dosage: 125 MG
  3. IBRANCE [Suspect]
     Active Substance: PALBOCICLIB
     Dosage: 100 MG
  4. IBRANCE [Suspect]
     Active Substance: PALBOCICLIB
     Dosage: EVERY DAY AT 12PM, TOOK FOR 3 WEEKS AND THEN WAS OFF FOR A WEEK
     Dates: end: 20240104

REACTIONS (7)
  - Interstitial lung disease [Fatal]
  - Pneumonitis [Fatal]
  - Acute respiratory distress syndrome [Unknown]
  - Pneumonia [Unknown]
  - Memory impairment [Unknown]
  - Panic reaction [Unknown]
  - Product dispensing error [Unknown]

NARRATIVE: CASE EVENT DATE: 20240101
